FAERS Safety Report 18029176 (Version 4)
Quarter: 2021Q1

REPORT INFORMATION
  Report Type: Other
  Country: JP (occurrence: JP)
  Receive Date: 20200716
  Receipt Date: 20210129
  Transmission Date: 20210419
  Serious: Yes (Other)
  Sender: FDA-Public Use
  Company Number: JP-ROCHE-2487166

PATIENT
  Age: 16 Year
  Sex: Female
  Weight: 55 kg

DRUGS (10)
  1. ENTRECTINIB [Suspect]
     Active Substance: ENTRECTINIB
     Indication: BRAIN NEOPLASM
     Route: 048
     Dates: start: 20190930, end: 20191024
  2. ENTRECTINIB [Suspect]
     Active Substance: ENTRECTINIB
     Dosage: DOSE INTERVAL UNCERTAIN. FIVE TIMES A WEEK.
     Route: 048
     Dates: start: 20191118, end: 20191203
  3. ENTRECTINIB [Suspect]
     Active Substance: ENTRECTINIB
     Dosage: DOSE INTERVAL UNCERTAIN. THREE TIMES A WEEK.
     Route: 048
     Dates: start: 20200121, end: 20200207
  4. ENTRECTINIB [Suspect]
     Active Substance: ENTRECTINIB
     Route: 048
     Dates: start: 20200316, end: 20200404
  5. ENTRECTINIB [Suspect]
     Active Substance: ENTRECTINIB
     Route: 048
     Dates: start: 20191101, end: 20191117
  6. ENTRECTINIB [Suspect]
     Active Substance: ENTRECTINIB
     Dosage: DOSE INTERVAL UNCERTAIN.THREE TIMES A WEEK.
     Route: 048
     Dates: start: 20191204, end: 20200105
  7. ENTRECTINIB [Suspect]
     Active Substance: ENTRECTINIB
     Dosage: DOSE INTERVAL UNCERTAIN.TWICE A WEEK.
     Route: 048
     Dates: start: 20200218, end: 20200302
  8. ENTRECTINIB [Suspect]
     Active Substance: ENTRECTINIB
     Dosage: DOSE INTERVAL UNCERTAIN.TWICE A WEEK.
     Route: 048
     Dates: start: 20200106, end: 20200120
  9. ENTRECTINIB [Suspect]
     Active Substance: ENTRECTINIB
     Route: 048
     Dates: start: 20200303, end: 20200315
  10. ENTRECTINIB [Suspect]
     Active Substance: ENTRECTINIB
     Route: 048
     Dates: start: 20191025, end: 20191031

REACTIONS (4)
  - Somnolence [Not Recovered/Not Resolved]
  - Disease progression [Unknown]
  - Fatigue [Not Recovered/Not Resolved]
  - Malaise [Not Recovered/Not Resolved]

NARRATIVE: CASE EVENT DATE: 20191025
